FAERS Safety Report 11221129 (Version 1)
Quarter: 2015Q2

REPORT INFORMATION
  Report Type: Spontaneous
  Country: US (occurrence: None)
  Receive Date: 20150625
  Receipt Date: 20150625
  Transmission Date: 20150821
  Serious: Yes (Disabling)
  Sender: FDA-Public Use
  Company Number: None

PATIENT
  Age: 14 Year
  Sex: Female
  Weight: 58.97 kg

DRUGS (1)
  1. LEXOFLOXACIN 500MG QUA [Suspect]
     Active Substance: LEVOFLOXACIN
     Indication: PNEUMONIA BACTERIAL
     Route: 048
     Dates: start: 20150617, end: 20150622

REACTIONS (1)
  - Tendon pain [None]

NARRATIVE: CASE EVENT DATE: 20150622
